FAERS Safety Report 14375459 (Version 3)
Quarter: 2018Q2

REPORT INFORMATION
  Report Type: Spontaneous
  Country: US (occurrence: US)
  Receive Date: 20180111
  Receipt Date: 20180418
  Transmission Date: 20180711
  Serious: No
  Sender: FDA-Public Use
  Company Number: US-ASTRAZENECA-2018SE03269

PATIENT
  Sex: Male
  Weight: 58.1 kg

DRUGS (1)
  1. SYMBICORT [Suspect]
     Active Substance: BUDESONIDE\FORMOTEROL FUMARATE DIHYDRATE
     Indication: DYSPNOEA
     Dosage: 80/4.5MCG ONE INHALATION TWICE DAILY
     Route: 055

REACTIONS (6)
  - Product use issue [Unknown]
  - Drug dose omission [Unknown]
  - Aortic valve incompetence [Unknown]
  - Off label use [Unknown]
  - Product use in unapproved indication [Unknown]
  - Device malfunction [Unknown]
